FAERS Safety Report 10246770 (Version 1)
Quarter: 2014Q2

REPORT INFORMATION
  Report Type: Spontaneous
  Country: US (occurrence: None)
  Receive Date: 20140617
  Receipt Date: 20140617
  Transmission Date: 20141212
  Serious: Yes (Other)
  Sender: FDA-Public Use
  Company Number: SYM-2014-22055

PATIENT
  Age: 14 Year
  Sex: Female

DRUGS (1)
  1. XENAZINE (TETRABENAZINE) (12.5 MILLIGRAM, TABLET) (TETRABENAZINE) [Suspect]
     Indication: CHOREA
     Dosage: 37.5 MG, 3 IN 1 D, G-TUBE
     Dates: start: 20130430

REACTIONS (1)
  - Hepatic enzyme increased [None]
